FAERS Safety Report 10949805 (Version 1)
Quarter: 2015Q1

REPORT INFORMATION
  Report Type: Spontaneous
  Country: None (occurrence: None)
  Receive Date: 20150323
  Receipt Date: 20150323
  Transmission Date: 20150721
  Serious: No
  Sender: FDA-Public Use
  Company Number: None

PATIENT
  Age: 65 Year
  Sex: Female
  Weight: 76.66 kg

DRUGS (7)
  1. CALCIUM [Concomitant]
     Active Substance: CALCIUM
  2. LOVAZA [Suspect]
     Active Substance: OMEGA-3-ACID ETHYL ESTERS
     Indication: ANTIINFLAMMATORY THERAPY
     Route: 048
     Dates: start: 20150319
  3. DIAZEPAM. [Concomitant]
     Active Substance: DIAZEPAM
  4. LOVAZA [Suspect]
     Active Substance: OMEGA-3-ACID ETHYL ESTERS
     Indication: HYPERLIPIDAEMIA
     Route: 048
     Dates: start: 20150319
  5. ASPIRIN. [Concomitant]
     Active Substance: ASPIRIN
  6. MAGNESIUM [Concomitant]
     Active Substance: MAGNESIUM
  7. ZINC [Concomitant]
     Active Substance: ZINC\ZINC CHLORIDE

REACTIONS (4)
  - Dysgeusia [None]
  - Incorrect dose administered [None]
  - Headache [None]
  - Fatigue [None]

NARRATIVE: CASE EVENT DATE: 20150319
